FAERS Safety Report 4446929-X (Version None)
Quarter: 2004Q3

REPORT INFORMATION
  Report Type: 
  Country: None (occurrence: None)
  Receive Date: 20040908
  Receipt Date: 20040826
  Transmission Date: 20050211
  Serious: Yes (Other)
  Sender: FDA-Public Use
  Company Number: 2002065797

PATIENT
  Sex: Female

DRUGS (14)
  1. VIAGRA [Suspect]
     Indication: PULMONARY HYPERTENSION
     Dosage: ORAL
     Route: 048
     Dates: start: 20020601
  2. EPOPROSTENOL (EPOPROSTENOL) [Suspect]
     Indication: PULMONARY HYPERTENSION
     Dosage: INTRAVENOUS
     Route: 042
     Dates: start: 20020601
  3. EPOPROSTENOL (EPOPROSTENOL) [Suspect]
     Indication: PULMONARY HYPERTENSION
     Dosage: INHALATION
     Route: 055
     Dates: start: 20020601
  4. NITRIC OXIDE (NITRIC OXIDE) [Suspect]
     Indication: PULMONARY HYPERTENSION
     Dosage: INHALATION
     Route: 055
     Dates: start: 20020601
  5. EPINEPHRINE [Suspect]
     Indication: MEAN ARTERIAL PRESSURE
     Dosage: INTRAVENOUS
     Route: 042
     Dates: start: 20021010
  6. NOREPINEPHRINE (NOREPINEPHRINE) [Suspect]
     Indication: MEAN ARTERIAL PRESSURE
     Dosage: INTRAVENOUS
     Route: 042
     Dates: start: 20021010
  7. ALL OTHER THERAPEUTIC PRODUCTS (ALL OTHER THERAPEUTIC PRODUCTS) [Concomitant]
  8. URSODEOXYCHOLIC ACID (URSODEOXYCHOLIC ACID) [Concomitant]
  9. PROPRANOLOL [Concomitant]
  10. DIURETICS (DIURETICS) [Concomitant]
  11. NITROGLYCERIN [Concomitant]
  12. MILRINONE (MILRINONE) [Concomitant]
  13. CYCLOSPORINE [Concomitant]
  14. BETA BLOCKING AGENTS (BETA BLOCKING AGENTS) [Concomitant]

REACTIONS (8)
  - HAEMATOMA [None]
  - HAEMODIALYSIS [None]
  - INTRA-ABDOMINAL HAEMORRHAGE [None]
  - LIP DISORDER [None]
  - PLATELET COUNT INCREASED [None]
  - POST PROCEDURAL HAEMORRHAGE [None]
  - SPIDER NAEVUS [None]
  - SURGICAL PROCEDURE REPEATED [None]
